FAERS Safety Report 23984729 (Version 1)
Quarter: 2024Q2

REPORT INFORMATION
  Report Type: Spontaneous
  Country: US (occurrence: US)
  Receive Date: 20240618
  Receipt Date: 20240618
  Transmission Date: 20240716
  Serious: No
  Sender: FDA-Public Use
  Company Number: US-ABBVIE-5799568

PATIENT
  Sex: Female

DRUGS (1)
  1. BOTOX [Suspect]
     Active Substance: ONABOTULINUMTOXINA
     Indication: Pollakiuria
     Dosage: TIME INTERVAL: AS NECESSARY
     Route: 065
     Dates: start: 20230830, end: 20230830

REACTIONS (1)
  - Dysuria [Unknown]
